FAERS Safety Report 15097191 (Version 1)
Quarter: 2018Q3

REPORT INFORMATION
  Report Type: Spontaneous
  Country: ZA (occurrence: ZA)
  Receive Date: 20180702
  Receipt Date: 20180702
  Transmission Date: 20181010
  Serious: Yes (Hospitalization, Other)
  Sender: FDA-Public Use
  Company Number: ZA-PFIZER INC-2018261366

PATIENT
  Age: 56 Year
  Sex: Male

DRUGS (9)
  1. PURICOS [Suspect]
     Active Substance: ALLOPURINOL
  2. PEARINDA [Suspect]
     Active Substance: PERINDOPRIL ERBUMINE
     Dosage: UNK
  3. PLAGROL [Suspect]
     Active Substance: CLOPIDOGREL BISULFATE
     Dosage: UNK
  4. GLUCOPHAGE XR [Suspect]
     Active Substance: METFORMIN HYDROCHLORIDE
     Dosage: UNK
  5. EPANUTIN [Suspect]
     Active Substance: PHENYTOIN SODIUM
     Dosage: UNK
  6. EPILIM [Suspect]
     Active Substance: VALPROATE SODIUM
     Dosage: UNK
  7. ZYTOMIL [Suspect]
     Active Substance: ESCITALOPRAM OXALATE
     Dosage: UNK
  8. ASPAVOR [Suspect]
     Active Substance: ATORVASTATIN
     Dosage: UNK
  9. UROMAX /00538902/ [Suspect]
     Active Substance: OXYBUTYNIN CHLORIDE
     Dosage: UNK

REACTIONS (5)
  - Dysphagia [Unknown]
  - Cerebrovascular accident [Unknown]
  - Cerebral autosomal dominant arteriopathy with subcortical infarcts and leukoencephalopathy [Unknown]
  - Hemiplegia [Unknown]
  - Mutism [Unknown]

NARRATIVE: CASE EVENT DATE: 201710
